FAERS Safety Report 12880899 (Version 2)
Quarter: 2016Q4

REPORT INFORMATION
  Report Type: Spontaneous
  Country: KR (occurrence: KR)
  Receive Date: 20161025
  Receipt Date: 20161101
  Transmission Date: 20170207
  Serious: Yes (Life-Threatening, Hospitalization)
  Sender: FDA-Public Use
  Company Number: KR-SA-2016SA194011

PATIENT
  Age: 70 Year
  Sex: Male
  Weight: 50 kg

DRUGS (12)
  1. IRBESARTAN. [Concomitant]
     Active Substance: IRBESARTAN
  2. FENTANYL. [Concomitant]
     Active Substance: FENTANYL
     Indication: ANAESTHESIA
  3. SEVOFLURANE. [Concomitant]
     Active Substance: SEVOFLURANE
     Indication: ANAESTHESIA
  4. OXYGEN. [Concomitant]
     Active Substance: OXYGEN
     Indication: ANAESTHESIA
  5. PLAVIX [Suspect]
     Active Substance: CLOPIDOGREL BISULFATE
     Route: 065
  6. SIMVASTATIN. [Concomitant]
     Active Substance: SIMVASTATIN
  7. THIOPENTAL SODIUM. [Concomitant]
     Active Substance: THIOPENTAL SODIUM
     Indication: ANAESTHESIA
  8. GLYCOPYRROLATE. [Concomitant]
     Active Substance: GLYCOPYRROLATE
     Indication: NEUROMUSCULAR BLOCKADE REVERSAL
  9. NEOSTIGMINE [Concomitant]
     Active Substance: NEOSTIGMINE
     Indication: NEUROMUSCULAR BLOCKADE REVERSAL
  10. HEPARIN SODIUM. [Suspect]
     Active Substance: HEPARIN SODIUM
     Indication: ANTICOAGULANT THERAPY
     Dosage: DOSE:1000 UNIT(S)
     Route: 042
  11. METFORMIN [Concomitant]
     Active Substance: METFORMIN HYDROCHLORIDE
  12. ROCURONIUM [Concomitant]
     Active Substance: ROCURONIUM BROMIDE
     Indication: ANAESTHESIA

REACTIONS (12)
  - Haemoptysis [Recovered/Resolved]
  - Lung infiltration [Recovered/Resolved]
  - Oxygen saturation decreased [Recovered/Resolved]
  - Respiratory rate increased [Recovered/Resolved]
  - Cough [Recovered/Resolved]
  - Pulmonary alveolar haemorrhage [Recovered/Resolved]
  - Rhonchi [Recovered/Resolved]
  - Respiratory failure [Recovered/Resolved]
  - PO2 decreased [Recovered/Resolved]
  - Blood bicarbonate decreased [Recovered/Resolved]
  - Blood pH decreased [Recovered/Resolved]
  - Hypoxia [Recovered/Resolved]
